FAERS Safety Report 8168965-2 (Version None)
Quarter: 2012Q1

REPORT INFORMATION
  Report Type: 
  Country: None (occurrence: None)
  Receive Date: 20120227
  Receipt Date: 20120222
  Transmission Date: 20120608
  Serious: Yes (Life-Threatening, Hospitalization, Other)
  Sender: FDA-Public Use
  Company Number: JP-TEVA-2011001042

PATIENT
  Sex: Female
  Weight: 58 kg

DRUGS (13)
  1. TREANDA [Suspect]
     Route: 042
     Dates: start: 20110623, end: 20110624
  2. ENTECAVIR [Concomitant]
     Dates: start: 20110215
  3. INSULIN HUMAN [Concomitant]
     Dates: start: 20110207
  4. INSULIN DETEMIR [Concomitant]
     Dates: start: 20110207
  5. SENNOSIDE A [Concomitant]
     Dates: start: 20110201
  6. TREANDA [Suspect]
     Route: 042
     Dates: start: 20110721, end: 20110722
  7. TREANDA [Suspect]
     Indication: B-CELL LYMPHOMA
     Route: 042
     Dates: start: 20110208
  8. TREANDA [Suspect]
     Route: 042
     Dates: start: 20110825, end: 20110826
  9. FLUCONAZOLE [Concomitant]
     Dates: start: 20110208
  10. SULFAMETHOXAZOLE SODIUM [Concomitant]
     Dates: start: 20110208
  11. OMEPRAZOLE [Concomitant]
     Dates: start: 20110208
  12. URSODIOL [Concomitant]
     Dates: start: 20110228
  13. RAMOSETRON HYDROCHLORIDE [Concomitant]
     Dates: start: 20110208

REACTIONS (9)
  - WHITE BLOOD CELL COUNT DECREASED [None]
  - BLOOD URIC ACID INCREASED [None]
  - MALAISE [None]
  - PLATELET COUNT DECREASED [None]
  - NEUTROPHIL COUNT DECREASED [None]
  - HEPATITIS B [None]
  - LYMPHOCYTE COUNT DECREASED [None]
  - DECREASED APPETITE [None]
  - BLOOD LACTATE DEHYDROGENASE INCREASED [None]
